FAERS Safety Report 25400487 (Version 1)
Quarter: 2025Q2

REPORT INFORMATION
  Report Type: Spontaneous
  Country: US (occurrence: US)
  Receive Date: 20250605
  Receipt Date: 20250605
  Transmission Date: 20250717
  Serious: No
  Sender: Day One Biopharmaceuticals
  Company Number: US-Day One Biopharmaceuticals Inc.-2025US000710

PATIENT

DRUGS (1)
  1. OJEMDA [Suspect]
     Active Substance: TOVORAFENIB
     Indication: Brain neoplasm malignant
     Dosage: 225 MG (9 ML)
     Route: 048
     Dates: start: 202502

REACTIONS (3)
  - Accidental overdose [Unknown]
  - Product solubility abnormal [Unknown]
  - Product use complaint [Unknown]
